FAERS Safety Report 10082971 (Version 1)
Quarter: 2014Q2

REPORT INFORMATION
  Report Type: Spontaneous
  Country: BR (occurrence: BR)
  Receive Date: 20140417
  Receipt Date: 20140417
  Transmission Date: 20141212
  Serious: Yes (Other)
  Sender: FDA-Public Use
  Company Number: BR-PFIZER INC-2014101746

PATIENT
  Age: 45 Year
  Sex: Female
  Weight: 60 kg

DRUGS (2)
  1. XALATAN [Suspect]
     Dosage: 6 UG, 2 DROPS IN EACH EYE, 1X/DAY
     Route: 047
     Dates: start: 20090914
  2. HYLO COMOD [Concomitant]
     Indication: DRY EYE

REACTIONS (3)
  - Cataract [Unknown]
  - Overdose [Unknown]
  - Drug ineffective [Not Recovered/Not Resolved]
